FAERS Safety Report 5673276-0 (Version None)
Quarter: 2008Q1

REPORT INFORMATION
  Report Type: 
  Country: None (occurrence: None)
  Receive Date: 20080319
  Receipt Date: 20080317
  Transmission Date: 20080703
  Serious: Yes (Hospitalization)
  Sender: FDA-Public Use
  Company Number: CN-ASTRAZENECA-2008AP01970

PATIENT
  Age: 72 Year
  Sex: Female

DRUGS (1)
  1. IRESSA [Suspect]
     Indication: NON-SMALL CELL LUNG CANCER
     Dosage: TOTAL DOSE = 100 TABLETS .TREATMENT NOT TAKEN CONTINUOUSLY
     Route: 048
     Dates: start: 20071101

REACTIONS (2)
  - DIARRHOEA [None]
  - PYREXIA [None]
